FAERS Safety Report 7393005-2 (Version None)
Quarter: 2011Q2

REPORT INFORMATION
  Report Type: 
  Country: None (occurrence: None)
  Receive Date: 20110404
  Receipt Date: 20110322
  Transmission Date: 20111010
  Serious: Yes (Death, Other)
  Sender: FDA-Public Use
  Company Number: CN-PFIZER INC-2011063542

PATIENT
  Age: 89 Year
  Sex: Female

DRUGS (5)
  1. ATORVASTATIN CALCIUM [Suspect]
     Dosage: 20 MG, 1X/DAY AT NIGHT
     Route: 048
     Dates: start: 20071228, end: 20080101
  2. ASPIRIN [Concomitant]
     Dosage: 100 MG, 1X/DAY
     Route: 048
     Dates: start: 20071228
  3. IMIDAPRIL [Concomitant]
     Dosage: 5 MG, UNK
     Route: 048
     Dates: start: 20071228
  4. DILTIAZEM [Concomitant]
     Dosage: 90 MG, 1X/DAY
     Route: 048
     Dates: start: 20071228
  5. PLAVIX [Concomitant]
     Dosage: 75 MG, UNK
     Route: 048
     Dates: start: 20071228

REACTIONS (2)
  - MULTI-ORGAN FAILURE [None]
  - RHABDOMYOLYSIS [None]
